FAERS Safety Report 22093624 (Version 1)
Quarter: 2023Q1

REPORT INFORMATION
  Report Type: Spontaneous
  Country: US (occurrence: None)
  Receive Date: 20230313
  Receipt Date: 20230313
  Transmission Date: 20230417
  Serious: Yes (Hospitalization)
  Sender: FDA-Public Use
  Company Number: None

PATIENT
  Age: 84 Year
  Sex: Male
  Weight: 75 kg

DRUGS (16)
  1. EMPAGLIFLOZIN [Suspect]
     Active Substance: EMPAGLIFLOZIN
     Indication: Type 2 diabetes mellitus
     Dosage: FREQUENCY : DAILY;?
     Route: 048
     Dates: start: 20221118, end: 20221224
  2. LIALDA [Concomitant]
     Active Substance: MESALAMINE
  3. APIXABAN [Concomitant]
     Active Substance: APIXABAN
  4. ASPIRIN [Concomitant]
     Active Substance: ASPIRIN
  5. CALCIUM CARBONATE [Concomitant]
     Active Substance: CALCIUM CARBONATE
  6. FERROUS GLUCONATE [Concomitant]
     Active Substance: FERROUS GLUCONATE
  7. FLUTICASONE [Concomitant]
     Active Substance: FLUTICASONE
  8. CHONDROITIN SULFATE (BOVINE)\GLUCOSAMINE SULFATE [Concomitant]
     Active Substance: CHONDROITIN SULFATE (BOVINE)\GLUCOSAMINE SULFATE
  9. HYDRALAZINE [Concomitant]
     Active Substance: HYDRALAZINE HYDROCHLORIDE
  10. INSULIN GLARGINE [Concomitant]
     Active Substance: INSULIN GLARGINE
  11. magnesium tablet [Concomitant]
  12. METFORMIN [Concomitant]
     Active Substance: METFORMIN HYDROCHLORIDE
  13. METOPROLOL SUCCINATE [Concomitant]
     Active Substance: METOPROLOL SUCCINATE
  14. PANTOPRAZOLE [Concomitant]
     Active Substance: PANTOPRAZOLE
  15. CYANOCOBALAMIN [Concomitant]
     Active Substance: CYANOCOBALAMIN
  16. CHOLECALCIFEROL [Concomitant]
     Active Substance: CHOLECALCIFEROL

REACTIONS (8)
  - Sleep disorder [None]
  - Pain [None]
  - Chest pain [None]
  - Eructation [None]
  - Sepsis [None]
  - Atrial fibrillation [None]
  - Oedematous pancreatitis [None]
  - Pleural effusion [None]

NARRATIVE: CASE EVENT DATE: 20221224
